FAERS Safety Report 25715346 (Version 2)
Quarter: 2025Q3

REPORT INFORMATION
  Report Type: Spontaneous
  Country: US (occurrence: US)
  Receive Date: 20250822
  Receipt Date: 20250918
  Transmission Date: 20251021
  Serious: No
  Sender: MERCK SHARP & DOHME LLC
  Company Number: US-009507513-2314953

PATIENT
  Sex: Female
  Weight: 72.6 kg

DRUGS (22)
  1. SOTATERCEPT [Suspect]
     Active Substance: SOTATERCEPT
     Indication: Product used for unknown indication
     Dosage: 0.4 (UNITS NOT PROVIDED)
     Dates: start: 202504, end: 202506
  2. SOTATERCEPT [Suspect]
     Active Substance: SOTATERCEPT
  3. SOTATERCEPT [Suspect]
     Active Substance: SOTATERCEPT
  4. SOTATERCEPT [Suspect]
     Active Substance: SOTATERCEPT
  5. Exemestane (Exemestane) [Concomitant]
  6. SODIUM CHLORIDE [Concomitant]
     Active Substance: SODIUM CHLORIDE
  7. TADALAFIL [Concomitant]
     Active Substance: TADALAFIL
  8. ATORVASTATIN CALCIUM [Concomitant]
     Active Substance: ATORVASTATIN CALCIUM
  9. OPSUMIT [Concomitant]
     Active Substance: MACITENTAN
  10. CELLCEPT [Concomitant]
     Active Substance: MYCOPHENOLATE MOFETIL
  11. SPIRONOLACTONE [Concomitant]
     Active Substance: SPIRONOLACTONE
  12. LEVOTHYROXINE SODIUM [Concomitant]
     Active Substance: LEVOTHYROXINE SODIUM
  13. Torsemide (Torasemide) [Concomitant]
  14. Ketamine HCL (Ketamine hydrochloride) [Concomitant]
  15. Lecithin (Glycine max extract) [Concomitant]
  16. Clonidine (Clonidine hydrochloride) [Concomitant]
  17. KETOPROFEN [Concomitant]
     Active Substance: KETOPROFEN
  18. Lidocaine HCL (Lidocaine hydrochloride) [Concomitant]
  19. Amitriptyline HCL (Amitriptyline hydrochloride) [Concomitant]
  20. GABAPENTIN [Concomitant]
     Active Substance: GABAPENTIN
  21. Poloxamer (Poloxamer) Gel [Concomitant]
  22. REMODULIN [Suspect]
     Active Substance: TREPROSTINIL
     Indication: Pulmonary arterial hypertension
     Route: 058
     Dates: start: 20241031, end: 20250516

REACTIONS (2)
  - Haemoglobin abnormal [Unknown]
  - Diarrhoea [Unknown]

NARRATIVE: CASE EVENT DATE: 20250101
